FAERS Safety Report 8802098 (Version 3)
Quarter: 2012Q4

REPORT INFORMATION
  Report Type: 
  Country: JP (occurrence: JP)
  Receive Date: 20120921
  Receipt Date: 20121227
  Transmission Date: 20130627
  Serious: Yes (Death, Other)
  Sender: FDA-Public Use
  Company Number: JP-009507513-1209JPN007573

PATIENT
  Age: 72 Year
  Sex: Male

DRUGS (9)
  1. RINDERON [Suspect]
     Indication: UVEITIS
     Dosage: 6 mg, qd
     Route: 059
     Dates: start: 20080514, end: 20080529
  2. RINDERON [Suspect]
     Dosage: 18 mg, qd
     Route: 059
     Dates: start: 20080530, end: 20080601
  3. RINDERON [Suspect]
     Dosage: 12 mg, qd
     Route: 059
     Dates: start: 20080602, end: 20080604
  4. RINDERON [Suspect]
     Dosage: 6 mg, qd
     Route: 059
     Dates: start: 20080605, end: 20080620
  5. CRAVIT [Concomitant]
     Indication: URINARY TRACT INFECTION
     Dosage: 800 mg, qd
     Route: 048
     Dates: start: 20080613, end: 20080619
  6. FLUMARIN [Concomitant]
     Indication: URINARY TRACT INFECTION
     Dosage: 4 g, qd
     Route: 059
     Dates: start: 20080620, end: 20080620
  7. FLIVAS [Concomitant]
     Indication: PROSTATE CANCER
     Dosage: 50 mg, qd
     Route: 048
     Dates: start: 20080414, end: 20080620
  8. BLOPRESS [Concomitant]
     Indication: HYPERTENSION
     Dosage: 8 mg, qd
     Route: 048
     Dates: start: 20080412, end: 20080620
  9. NOVORAPID [Concomitant]
     Indication: DIABETES MELLITUS
     Dosage: UNK
     Route: 058
     Dates: start: 20080419, end: 20080620

REACTIONS (2)
  - Gastrointestinal haemorrhage [Fatal]
  - Cytomegalovirus infection [Unknown]
